FAERS Safety Report 18552878 (Version 1)
Quarter: 2020Q4

REPORT INFORMATION
  Report Type: Spontaneous
  Country: US (occurrence: US)
  Receive Date: 20201127
  Receipt Date: 20201127
  Transmission Date: 20210114
  Serious: No
  Sender: FDA-Public Use
  Company Number: US-ACCORD-205032

PATIENT
  Sex: Male
  Weight: 83.91 kg

DRUGS (1)
  1. PRASUGREL. [Suspect]
     Active Substance: PRASUGREL
     Indication: CARDIAC DISORDER
     Dosage: DISPENSED IN A PHARMACY VIAL
     Route: 048
     Dates: start: 20200813, end: 20200814

REACTIONS (4)
  - Wheezing [Unknown]
  - Fatigue [Unknown]
  - Dyspnoea [Unknown]
  - Asthenia [Unknown]
